FAERS Safety Report 10456487 (Version 2)
Quarter: 2014Q3

REPORT INFORMATION
  Report Type: Spontaneous
  Country: US (occurrence: None)
  Receive Date: 20140827
  Receipt Date: 20140924
  Transmission Date: 20150326
  Serious: Yes (Life-Threatening, Hospitalization, Other)
  Sender: FDA-Public Use
  Company Number: 1713747-2014-99995

PATIENT
  Age: 63 Year
  Sex: Female

DRUGS (3)
  1. DELFLEX [Suspect]
     Active Substance: CALCIUM CHLORIDE\DEXTROSE MONOHYDRATE\MAGNESIUM CHLORIDE\SODIUM CHLORIDE\SODIUM LACTATE
     Indication: PERITONEAL DIALYSIS
     Dates: start: 20140606
  2. LIBERTY DIALYSIS CYCLER [Concomitant]
  3. LIBERTY DIALYSIS TUBING [Concomitant]

REACTIONS (3)
  - Diarrhoea [None]
  - Abdominal pain [None]
  - Peritonitis [None]

NARRATIVE: CASE EVENT DATE: 20140604
